FAERS Safety Report 15267474 (Version 1)
Quarter: 2018Q3

REPORT INFORMATION
  Report Type: Spontaneous
  Country: US (occurrence: US)
  Receive Date: 20180724
  Receipt Date: 20180724
  Transmission Date: 20181010
  Serious: Yes (Hospitalization)
  Sender: FDA-Public Use
  Company Number: None

PATIENT
  Age: 62 Year
  Sex: Male
  Weight: 92.1 kg

DRUGS (21)
  1. ALBUTEROL INHALER [Concomitant]
     Active Substance: ALBUTEROL
  2. ASPIRIN 81 MG [Concomitant]
     Active Substance: ASPIRIN
  3. ONDANSETRON [Concomitant]
     Active Substance: ONDANSETRON
  4. RANITIDINE. [Concomitant]
     Active Substance: RANITIDINE
  5. ACETAMINOPHEN. [Concomitant]
     Active Substance: ACETAMINOPHEN
  6. ALBUTEROL NEBULIZER [Concomitant]
     Active Substance: ALBUTEROL
  7. RIVAROXABAN [Concomitant]
     Active Substance: RIVAROXABAN
  8. BECLOMETHASONE INHALER [Concomitant]
  9. K?PHOS NEUTRAL [Concomitant]
     Active Substance: POTASSIUM PHOSPHATE\SODIUM PHOSPHATE
  10. ALPRAZOLAM. [Concomitant]
     Active Substance: ALPRAZOLAM
  11. AMLODIPINE [Concomitant]
     Active Substance: AMLODIPINE BESYLATE
  12. LOSARTAN. [Concomitant]
     Active Substance: LOSARTAN
  13. PAZOPANIB [Suspect]
     Active Substance: PAZOPANIB
     Indication: PLEOMORPHIC LIPOSARCOMA
     Route: 048
     Dates: start: 20171115, end: 20180227
  14. FILGRASTIN [Concomitant]
  15. TRIAMCINOLONE NASAL INHALER [Concomitant]
  16. TAMSULOSIN [Concomitant]
     Active Substance: TAMSULOSIN
  17. ZOLPIDEM [Concomitant]
     Active Substance: ZOLPIDEM\ZOLPIDEM TARTRATE
  18. PAZOPANIB [Suspect]
     Active Substance: PAZOPANIB
     Indication: METASTASIS
     Route: 048
     Dates: start: 20171115, end: 20180227
  19. LEVOCETIRIZINE [Concomitant]
     Active Substance: LEVOCETIRIZINE
  20. FINASTERIDE. [Concomitant]
     Active Substance: FINASTERIDE
  21. MULTIVITAMIN [Concomitant]
     Active Substance: VITAMINS

REACTIONS (4)
  - Mediastinal shift [None]
  - Pneumothorax [None]
  - Metastases to lung [None]
  - Therapy non-responder [None]

NARRATIVE: CASE EVENT DATE: 20180227
